FAERS Safety Report 8147625-8 (Version None)
Quarter: 2012Q1

REPORT INFORMATION
  Report Type: 
  Country: None (occurrence: None)
  Receive Date: 20120218
  Receipt Date: 20110427
  Transmission Date: 20120608
  Serious: No
  Sender: FDA-Public Use
  Company Number: US-ALLERGAN-1102608US

PATIENT
  Age: 79 Year
  Sex: Female

DRUGS (2)
  1. BLINK [Concomitant]
     Indication: DRY EYE
     Dosage: UNK
     Route: 047
  2. BOTULINUM TOXIN TYPE A [Suspect]
     Indication: EYELID PTOSIS
     Dosage: 20 UNITS, SINGLE
     Route: 030
     Dates: start: 20110118, end: 20110118

REACTIONS (8)
  - FACIAL PARESIS [None]
  - EYE HAEMORRHAGE [None]
  - VISION BLURRED [None]
  - SWELLING FACE [None]
  - OVERDOSE [None]
  - LAGOPHTHALMOS [None]
  - OCULAR HYPERAEMIA [None]
  - EYE MOVEMENT DISORDER [None]
